FAERS Safety Report 4425802-7 (Version None)
Quarter: 2004Q3

REPORT INFORMATION
  Report Type: 
  Country: None (occurrence: None)
  Receive Date: 20040719
  Receipt Date: 20040406
  Transmission Date: 20050211
  Serious: No
  Sender: FDA-Public Use
  Company Number: A03200401113

PATIENT
  Sex: Male

DRUGS (2)
  1. UROXATRAL [Suspect]
  2. SOTALOL HYDROCHLORIDE [Concomitant]

REACTIONS (1)
  - ARRHYTHMIA [None]
